FAERS Safety Report 6386479-7 (Version None)
Quarter: 2009Q4

REPORT INFORMATION
  Report Type: 
  Country: None (occurrence: None)
  Receive Date: 20091002
  Receipt Date: 20090605
  Transmission Date: 20100525
  Serious: No
  Sender: FDA-Public Use
  Company Number: US-ASTRAZENECA-2009UW14648

PATIENT
  Age: 67 Year
  Sex: Female

DRUGS (4)
  1. ARIMIDEX [Suspect]
     Route: 048
     Dates: start: 20090201
  2. METFORMIN [Concomitant]
  3. ALBUTEROL [Concomitant]
  4. PROMETH CODEINE COUGH SYRUP [Concomitant]

REACTIONS (8)
  - COUGH [None]
  - DIARRHOEA [None]
  - DYSPHONIA [None]
  - INSOMNIA [None]
  - LIGAMENT INJURY [None]
  - MUSCULOSKELETAL CHEST PAIN [None]
  - MUSCULOSKELETAL PAIN [None]
  - RHINORRHOEA [None]
